FAERS Safety Report 6615203-5 (Version None)
Quarter: 2010Q1

REPORT INFORMATION
  Report Type: 
  Country: None (occurrence: None)
  Receive Date: 20100305
  Receipt Date: 20100302
  Transmission Date: 20100710
  Serious: Yes (Death)
  Sender: FDA-Public Use
  Company Number: PHHY2010IN11851

PATIENT
  Age: 73 Year
  Sex: Male

DRUGS (1)
  1. ASUNRA [Suspect]
     Dosage: 100/400MG
     Route: 048

REACTIONS (1)
  - MULTI-ORGAN FAILURE [None]
